FAERS Safety Report 6534081-6 (Version None)
Quarter: 2010Q1

REPORT INFORMATION
  Report Type: 
  Country: None (occurrence: None)
  Receive Date: 20100112
  Receipt Date: 20100104
  Transmission Date: 20100710
  Serious: Yes (Hospitalization, Other)
  Sender: FDA-Public Use
  Company Number: PHHY2010BR01003

PATIENT
  Sex: Male

DRUGS (10)
  1. METFORMIN HYDROCHLORIDE [Suspect]
     Dosage: 850 MG
     Route: 065
  2. TOPIRAMATE [Concomitant]
     Dosage: AFTER LUNCH
     Route: 065
  3. TEGRETOL [Concomitant]
     Dosage: BEFORE DINNER
     Route: 065
  4. AMLODIPINE [Concomitant]
     Dosage: BEFORE DINNER
     Route: 065
  5. CRESTOR [Concomitant]
     Dosage: BEFORE DINNER
     Route: 065
  6. ZOLPIDEM TARTRATE [Concomitant]
     Dosage: BEFORE DINNER
     Route: 065
  7. ATACAND [Concomitant]
     Dosage: IN THE MORNING
     Route: 065
  8. ACETYLSALICYLIC ACID [Concomitant]
     Dosage: IN THE MORNING
     Route: 065
  9. SERTRALINE HYDROCHLORIDE [Concomitant]
     Dosage: IN THE MORNING
     Route: 065
  10. OMEPRAZOL ^ACYFABRIK^ [Concomitant]
     Dosage: IN THE MORNING
     Route: 065

REACTIONS (2)
  - BLOOD GLUCOSE INCREASED [None]
  - DIARRHOEA [None]
